FAERS Safety Report 7023478-6 (Version None)
Quarter: 2010Q3

REPORT INFORMATION
  Report Type: 
  Country: None (occurrence: None)
  Receive Date: 20100929
  Receipt Date: 20100915
  Transmission Date: 20110219
  Serious: Yes (Other)
  Sender: FDA-Public Use
  Company Number: TPA2010A05023

PATIENT
  Age: 56 Year
  Sex: Male
  Weight: 92.5338 kg

DRUGS (1)
  1. ACTOS [Suspect]
     Indication: TYPE 2 DIABETES MELLITUS
     Dosage: UNK 1 IN 1 D, PER ORAL
     Route: 048
     Dates: start: 20050101, end: 20100801

REACTIONS (11)
  - ABDOMINAL DISTENSION [None]
  - ABDOMINAL PAIN UPPER [None]
  - CONCUSSION [None]
  - DIZZINESS [None]
  - FALL [None]
  - HEPATIC CIRRHOSIS [None]
  - HEPATIC NEOPLASM MALIGNANT [None]
  - HEPATIC VEIN THROMBOSIS [None]
  - HEPATITIS [None]
  - SINUSITIS [None]
  - WEIGHT INCREASED [None]
